FAERS Safety Report 21225218 (Version 4)
Quarter: 2022Q3

REPORT INFORMATION
  Report Type: Report from Study
  Country: CN (occurrence: None)
  Receive Date: 20220817
  Receipt Date: 20220903
  Transmission Date: 20221026
  Serious: Yes (Hospitalization)
  Sender: FDA-Public Use
  Company Number: CN-ROCHE-3161074

PATIENT
  Age: 67 Year
  Sex: Male
  Weight: 59.5 kg

DRUGS (4)
  1. TIRAGOLUMAB [Suspect]
     Active Substance: TIRAGOLUMAB
     Indication: Oesophageal squamous cell carcinoma
     Dosage: ON 05/AUG/2022 START DATE OF MOST RECENT DOSE OF TIRAGOLUMAB PRIOR TO AE AND SAE.
     Route: 042
     Dates: start: 20220621
  2. ATEZOLIZUMAB [Suspect]
     Active Substance: ATEZOLIZUMAB
     Indication: Oesophageal squamous cell carcinoma
     Dosage: ON 05/AUG/2022 START DATE OF MOST RECENT DOSE OF ATEZOLIZUMAB PRIOR TO AE AND SAE.
     Route: 041
     Dates: start: 20220621
  3. VITAMIN C [Concomitant]
     Active Substance: ASCORBIC ACID
     Indication: Nutritional supplementation
     Dates: start: 20220813, end: 20220815
  4. VITAMIN B6 [Concomitant]
     Active Substance: PYRIDOXINE HYDROCHLORIDE
     Indication: Nutritional supplementation
     Dates: start: 20220813, end: 20220815

REACTIONS (1)
  - Pneumonia [Recovered/Resolved]

NARRATIVE: CASE EVENT DATE: 20220812
